FAERS Safety Report 6555594-7 (Version None)
Quarter: 2010Q1

REPORT INFORMATION
  Report Type: 
  Country: None (occurrence: None)
  Receive Date: 20100128
  Receipt Date: 20100121
  Transmission Date: 20100710
  Serious: No
  Sender: FDA-Public Use
  Company Number: US-B.I. PHARMACEUTICALS,INC./RIDGEFIELD-2010-BP-00810BP

PATIENT
  Sex: Female

DRUGS (6)
  1. ZANTAC 150 [Suspect]
     Indication: GASTROOESOPHAGEAL REFLUX DISEASE
     Dosage: 300 MG
     Route: 048
     Dates: start: 20100101, end: 20100120
  2. ZANTAC 150 [Suspect]
     Dosage: 150 MG
     Route: 048
     Dates: start: 20100120
  3. ALTACE [Concomitant]
     Indication: HYPERTENSION
  4. NORVASC [Concomitant]
     Indication: HYPERTENSION
  5. LIPITOR [Concomitant]
     Indication: BLOOD CHOLESTEROL INCREASED
  6. JANUVIA [Concomitant]
     Indication: DIABETES MELLITUS

REACTIONS (1)
  - ABDOMINAL PAIN [None]
